FAERS Safety Report 4441093-5 (Version None)
Quarter: 2004Q3

REPORT INFORMATION
  Report Type: 
  Country: None (occurrence: None)
  Receive Date: 20040830
  Receipt Date: 20030804
  Transmission Date: 20050211
  Serious: Yes (Other)
  Sender: FDA-Public Use
  Company Number: 231205

PATIENT
  Age: 72 Year
  Sex: Male
  Weight: 81.6 kg

DRUGS (6)
  1. NOVOLIN 70/30 [Suspect]
     Indication: INSULIN-REQUIRING TYPE II DIABETES MELLITUS
     Dosage: 20 IU, QD, SUBCUTANEOUS
     Route: 058
     Dates: start: 20000101
  2. NOVOLIN N [Suspect]
     Indication: INSULIN-REQUIRING TYPE II DIABETES MELLITUS
     Dosage: 20 IU, QD, SUBCUTANEOUS
     Route: 058
     Dates: start: 20000101
  3. INNOVO (INSULIN DELIVERY DEVICE) [Concomitant]
  4. NOVOFINE 30 (NEEDLE) [Concomitant]
  5. HYDROCORTISONE [Concomitant]
  6. CHROMIUM PICOLINATE (CHROMIUM PICOLINATE) [Concomitant]

REACTIONS (1)
  - BLOOD GLUCOSE FLUCTUATION [None]
